FAERS Safety Report 21545509 (Version 2)
Quarter: 2023Q1

REPORT INFORMATION
  Report Type: Report from Study
  Country: US (occurrence: US)
  Receive Date: 20221103
  Receipt Date: 20230110
  Transmission Date: 20230418
  Serious: No
  Sender: FDA-Public Use
  Company Number: US-ABBVIE-4157719

PATIENT
  Sex: Female

DRUGS (2)
  1. SKYRIZI [Suspect]
     Active Substance: RISANKIZUMAB-RZAA
     Indication: Psoriasis
     Dosage: FORM STRENGTH: 150 MILLIGRAM, WEEK 0 SKYRIZI START DATE 21 SEP 2022
     Route: 058
  2. SKYRIZI [Suspect]
     Active Substance: RISANKIZUMAB-RZAA
     Dosage: WEEK 4; FORM STRENGTH: 150 MG
     Route: 058

REACTIONS (7)
  - Dizziness [Unknown]
  - Psoriasis [Unknown]
  - Fatigue [Unknown]
  - Sinusitis [Not Recovered/Not Resolved]
  - COVID-19 [Unknown]
  - Renal pain [Unknown]
  - Hot flush [Unknown]

NARRATIVE: CASE EVENT DATE: 20220101
